FAERS Safety Report 4828726-6 (Version None)
Quarter: 2005Q4

REPORT INFORMATION
  Report Type: 
  Country: None (occurrence: None)
  Receive Date: 20051115
  Receipt Date: 20051005
  Transmission Date: 20060501
  Serious: Yes (Hospitalization)
  Sender: FDA-Public Use
  Company Number: US-MERCK-0510USA04283

PATIENT
  Age: 51 Year
  Sex: Male
  Weight: 108 kg

DRUGS (9)
  1. VIOXX [Suspect]
     Indication: NERVE COMPRESSION
     Route: 048
     Dates: start: 20030722, end: 20030801
  2. VIOXX [Suspect]
     Route: 048
     Dates: start: 20030808, end: 20030808
  3. GLUCOTROL [Concomitant]
     Route: 065
  4. TIZANIDINE HYDROCHLORIDE [Concomitant]
     Route: 065
  5. ZOLOFT [Concomitant]
     Route: 065
  6. FLONASE [Concomitant]
     Route: 065
  7. ALLEGRA [Concomitant]
     Route: 065
  8. LORTAB [Concomitant]
     Route: 065
  9. NADOLOL [Concomitant]
     Route: 065

REACTIONS (4)
  - BLOOD GLUCOSE INCREASED [None]
  - PLEURAL EFFUSION [None]
  - SINUS DISORDER [None]
  - TRIGGER FINGER [None]
